FAERS Safety Report 12566497 (Version 4)
Quarter: 2017Q3

REPORT INFORMATION
  Report Type: Report from Study
  Country: JP (occurrence: JP)
  Receive Date: 20160718
  Receipt Date: 20170726
  Transmission Date: 20171127
  Serious: Yes (Death)
  Sender: FDA-Public Use
  Company Number: JP-SA-2016SA130112

PATIENT
  Age: 31 Year
  Sex: Female

DRUGS (12)
  1. RASURITEK [Concomitant]
     Active Substance: RASBURICASE
     Indication: NEPHROGENIC ANAEMIA
     Route: 042
     Dates: start: 20160626, end: 20160630
  2. GRANISETRON [Concomitant]
     Active Substance: GRANISETRON
     Route: 042
  3. NEORESTAR [Concomitant]
     Route: 042
  4. LASIX [Concomitant]
     Active Substance: FUROSEMIDE
     Route: 042
  5. CARBOHYDRATES NOS/SODIUM LACTATE/SODIUM CHLORIDE/POTASSIUM CHLORIDE [Concomitant]
     Route: 042
  6. MAXIPIME [Concomitant]
     Active Substance: CEFEPIME HYDROCHLORIDE
     Route: 042
  7. ENDOXAN [Suspect]
     Active Substance: CYCLOPHOSPHAMIDE
     Indication: ACUTE LYMPHOCYTIC LEUKAEMIA RECURRENT
     Route: 042
     Dates: start: 20160627, end: 20160630
  8. ACELIO [Concomitant]
     Active Substance: ACETAMINOPHEN
     Route: 042
  9. ETOPOSIDE. [Suspect]
     Active Substance: ETOPOSIDE
     Indication: ACUTE LYMPHOCYTIC LEUKAEMIA RECURRENT
     Route: 042
     Dates: start: 20160627, end: 20160630
  10. SOLDEM 1 [Concomitant]
     Active Substance: DEXTROSE\SODIUM CHLORIDE\SODIUM LACTATE
     Route: 042
  11. PREDONINE [Concomitant]
     Active Substance: PREDNISOLONE
     Route: 065
  12. EVOLTRA [Suspect]
     Active Substance: CLOFARABINE
     Indication: ACUTE LYMPHOCYTIC LEUKAEMIA RECURRENT
     Route: 042
     Dates: start: 20160627, end: 20160630

REACTIONS (1)
  - Tumour lysis syndrome [Fatal]

NARRATIVE: CASE EVENT DATE: 20160629
